FAERS Safety Report 14984029 (Version 3)
Quarter: 2018Q3

REPORT INFORMATION
  Report Type: Spontaneous
  Country: US (occurrence: US)
  Receive Date: 20180607
  Receipt Date: 20180726
  Transmission Date: 20181010
  Serious: Yes (Other)
  Sender: FDA-Public Use
  Company Number: US-BAYER-2018-105508

PATIENT
  Age: 70 Year
  Sex: Female
  Weight: 72.56 kg

DRUGS (1)
  1. ALKA?SELTZER HEARTBURN RELIEFCHEWS [Suspect]
     Active Substance: CALCIUM CARBONATE
     Indication: GASTROOESOPHAGEAL REFLUX DISEASE
     Dosage: 2 DF, UNK
     Route: 048
     Dates: start: 20180531, end: 20180531

REACTIONS (4)
  - Foreign body in respiratory tract [Recovered/Resolved]
  - Product physical consistency issue [Unknown]
  - Choking [Recovered/Resolved]
  - Retching [Recovered/Resolved]

NARRATIVE: CASE EVENT DATE: 20180531
